FAERS Safety Report 23174096 (Version 1)
Quarter: 2023Q4

REPORT INFORMATION
  Report Type: Spontaneous
  Country: US (occurrence: None)
  Receive Date: 20231112
  Receipt Date: 20231112
  Transmission Date: 20240109
  Serious: Yes (Other)
  Sender: FDA-Public Use
  Company Number: US-ENDO-CASE-0040752

PATIENT
  Sex: Male

DRUGS (1)
  1. RANITIDINE HYDROCHLORIDE [Suspect]
     Active Substance: RANITIDINE HYDROCHLORIDE

REACTIONS (9)
  - Gastrointestinal disorder [Unknown]
  - Diabetes mellitus [Unknown]
  - Liver disorder [Unknown]
  - Hepatic cirrhosis [Unknown]
  - Barrett^s oesophagus [Unknown]
  - Gastrointestinal disorder [Unknown]
  - Prostatic disorder [Unknown]
  - Pancreatic disorder [Unknown]
  - Bladder disorder [Unknown]
